FAERS Safety Report 23430487 (Version 2)
Quarter: 2024Q1

REPORT INFORMATION
  Report Type: Spontaneous
  Country: US (occurrence: None)
  Receive Date: 20240123
  Receipt Date: 20240304
  Transmission Date: 20240409
  Serious: No
  Sender: FDA-Public Use
  Company Number: 2024A014692

PATIENT

DRUGS (1)
  1. BUDESONIDE\FORMOTEROL [Suspect]
     Active Substance: BUDESONIDE\FORMOTEROL
     Dosage: 80 UG/INHAL, UNKNOWN UNKNOWN
     Route: 055

REACTIONS (3)
  - Dysphonia [Unknown]
  - Wrong technique in device usage process [Unknown]
  - Device delivery system issue [Unknown]
